FAERS Safety Report 19450490 (Version 8)
Quarter: 2022Q3

REPORT INFORMATION
  Report Type: Spontaneous
  Country: IN (occurrence: IN)
  Receive Date: 20210622
  Receipt Date: 20220916
  Transmission Date: 20221027
  Serious: Yes (Hospitalization, Other)
  Sender: FDA-Public Use
  Company Number: IN-PFIZER INC-2020069657

PATIENT
  Age: 58 Year
  Sex: Female

DRUGS (6)
  1. PALBOCICLIB [Suspect]
     Active Substance: PALBOCICLIB
     Indication: Breast cancer metastatic
     Dosage: 125 MG, 1X/DAY
     Route: 048
     Dates: start: 20200205
  2. PALBOCICLIB [Suspect]
     Active Substance: PALBOCICLIB
     Dosage: 100 MG, CYCLIC (ONCE DAILY, 3 WEEKS ON AND 1 WEEK OFF )
     Route: 048
     Dates: start: 20210628
  3. PALBOCICLIB [Suspect]
     Active Substance: PALBOCICLIB
     Dosage: 125 MG
     Route: 048
  4. LETROZOLE [Concomitant]
     Active Substance: LETROZOLE
     Dosage: 2.5 MG, 1X/DAY
     Route: 048
     Dates: start: 202002
  5. DENOSUMAB [Concomitant]
     Active Substance: DENOSUMAB
     Indication: Prophylaxis
     Dosage: UNK
  6. XGEVA [Concomitant]
     Active Substance: DENOSUMAB
     Dosage: 120 MG, MONTHLY
     Route: 058

REACTIONS (12)
  - Pyrexia [Unknown]
  - Colitis ulcerative [Unknown]
  - Neutropenia [Unknown]
  - Abdominal pain upper [Unknown]
  - Left ventricular hypertrophy [Unknown]
  - Diarrhoea [Recovering/Resolving]
  - Bone loss [Unknown]
  - Mouth haemorrhage [Unknown]
  - Mouth injury [Unknown]
  - Gastrointestinal disorder [Unknown]
  - Full blood count abnormal [Unknown]
  - Drug ineffective [Unknown]

NARRATIVE: CASE EVENT DATE: 20200201
